FAERS Safety Report 7678281-0 (Version None)
Quarter: 2011Q3

REPORT INFORMATION
  Report Type: 
  Country: None (occurrence: None)
  Receive Date: 20110811
  Receipt Date: 20110801
  Transmission Date: 20111222
  Serious: Yes (Other)
  Sender: FDA-Public Use
  Company Number: PHFR2011GB04567

PATIENT
  Age: 37 Year
  Sex: Female

DRUGS (2)
  1. TEGRETOL [Suspect]
     Dosage: 200 MG, BID
     Route: 048
  2. KEPPRA [Concomitant]
     Dosage: 500 MG, BID

REACTIONS (1)
  - CONVULSION [None]
